FAERS Safety Report 8343170-5 (Version None)
Quarter: 2012Q1

REPORT INFORMATION
  Report Type: 
  Country: None (occurrence: None)
  Receive Date: 20120330
  Receipt Date: 20110316
  Transmission Date: 20120608
  Serious: Yes (Other)
  Sender: FDA-Public Use
  Company Number: PHHY2011US21868

PATIENT
  Age: 85 Year
  Sex: Female

DRUGS (4)
  1. WELLBUTRIN [Concomitant]
  2. EXELON [Suspect]
     Dosage: 9.5 MG, QD, TRANSDERMAL
     Route: 062
  3. PERCOCET [Concomitant]
  4. XANAX [Concomitant]

REACTIONS (4)
  - WRONG TECHNIQUE IN DRUG USAGE PROCESS [None]
  - HIP FRACTURE [None]
  - DEMENTIA [None]
  - FALL [None]
